FAERS Safety Report 8027919-7 (Version None)
Quarter: 2011Q4

REPORT INFORMATION
  Report Type: 
  Country: None (occurrence: None)
  Receive Date: 20111130
  Receipt Date: 20110711
  Transmission Date: 20120403
  Serious: Yes (Hospitalization, Other)
  Sender: FDA-Public Use
  Company Number: US200903003340

PATIENT
  Age: 76 Year
  Sex: Female
  Weight: 84.8 kg

DRUGS (21)
  1. FELODIPINE [Concomitant]
  2. SOLU-MEDROL [Concomitant]
  3. GLUCOVANCE [Concomitant]
  4. LOPRSSOR (METOPROLOL TARTRATE) [Concomitant]
  5. POTASSIUM CHLORIDE [Concomitant]
  6. ZEGERID (OMEPRAZOLE) [Concomitant]
  7. ASPIRIN [Concomitant]
  8. METFORMIN HCL [Concomitant]
  9. NEURONTIN [Concomitant]
  10. PREDNISONE TAB [Concomitant]
  11. BYETTA [Suspect]
     Dosage: 5 UG, BID, SUBCUTANEOUS ; 10 UG, BID
     Dates: start: 20050401
  12. THEOPHYLLINE [Concomitant]
  13. PLAVIX [Concomitant]
  14. ZITHROMAX [Concomitant]
  15. ZOCOR [Concomitant]
  16. EXENATIDE UNK STRENGTH PEN,DISPOSABLE DEVICE (EXENATIDE PEN (UNKNOWN S [Concomitant]
  17. NOVOLOG [Concomitant]
  18. LASIX [Concomitant]
  19. BENAZEPRIL HYDROCHLORIDE [Concomitant]
  20. ATARAX (ALPRAZOLAM) [Concomitant]
  21. TRICOR [Concomitant]

REACTIONS (4)
  - OFF LABEL USE [None]
  - PANCREATITIS ACUTE [None]
  - RENAL INJURY [None]
  - WEIGHT DECREASED [None]
